FAERS Safety Report 10168291 (Version 1)
Quarter: 2014Q2

REPORT INFORMATION
  Report Type: Spontaneous
  Country: US (occurrence: US)
  Receive Date: 20140512
  Receipt Date: 20140512
  Transmission Date: 20141212
  Serious: No
  Sender: FDA-Public Use
  Company Number: US-009507513-1404USA014854

PATIENT
  Age: 39 Year
  Sex: Female

DRUGS (2)
  1. NUVARING [Suspect]
     Indication: MENSTRUAL CYCLE MANAGEMENT
     Dosage: UNK
     Route: 067
     Dates: start: 20140320, end: 20140410
  2. NUVARING [Suspect]
     Dosage: UNK
     Route: 067
     Dates: start: 20140410, end: 20140424

REACTIONS (7)
  - Emotional disorder [Unknown]
  - Metrorrhagia [Unknown]
  - Dysmenorrhoea [Unknown]
  - Menorrhagia [Unknown]
  - Drug administration error [Unknown]
  - Incorrect drug administration duration [Unknown]
  - Thrombosis [Unknown]
